FAERS Safety Report 15019780 (Version 1)
Quarter: 2018Q2

REPORT INFORMATION
  Report Type: Spontaneous
  Country: FR (occurrence: FR)
  Receive Date: 20180618
  Receipt Date: 20180618
  Transmission Date: 20180711
  Serious: Yes (Hospitalization)
  Sender: FDA-Public Use
  Company Number: FR-TEVA-2018-FR-907338

PATIENT
  Age: 46 Year
  Sex: Female
  Weight: 92 kg

DRUGS (10)
  1. PROPRANOLOL [Suspect]
     Active Substance: PROPRANOLOL HYDROCHLORIDE
     Indication: SUICIDE ATTEMPT
     Route: 048
     Dates: start: 20180212, end: 20180212
  2. IMOVANE [Suspect]
     Active Substance: ZOPICLONE
     Indication: SUICIDE ATTEMPT
     Route: 048
     Dates: start: 20180212, end: 20180212
  3. CHLORPROMAZINE. [Suspect]
     Active Substance: CHLORPROMAZINE
     Indication: SUICIDE ATTEMPT
     Route: 048
     Dates: start: 20180212, end: 20180212
  4. THERALENE 5 MG, COMPRIM? PELLICUL? S?CABLE [Concomitant]
     Active Substance: TRIMEPRAZINE TARTRATE
     Dosage: 1 DOSAGE FORMS DAILY;
     Route: 048
  5. TOPIRAMATE. [Suspect]
     Active Substance: TOPIRAMATE
     Indication: SUICIDE ATTEMPT
     Route: 048
     Dates: start: 20180212, end: 20180212
  6. SERESTA 50 MG, COMPRIM? S?CABLE [Suspect]
     Active Substance: OXAZEPAM
     Indication: SUICIDE ATTEMPT
     Route: 048
     Dates: start: 20180212, end: 20180212
  7. XEROQUEL LP 400 MG, COMPRIM? ? LIB?RATION PROLONG?E [Suspect]
     Active Substance: QUETIAPINE FUMARATE
     Indication: SUICIDE ATTEMPT
     Route: 048
     Dates: start: 20180212, end: 20180212
  8. NORSET 15 MG, COMPRIM? PELLICUL? [Suspect]
     Active Substance: MIRTAZAPINE
     Indication: SUICIDE ATTEMPT
     Route: 048
     Dates: start: 20180212, end: 20180212
  9. SULFARLEM S 25 MG, COMPRIM? ENROB? [Concomitant]
     Dosage: 4 DOSAGE FORMS DAILY;
     Route: 048
  10. EFFEXOR [Suspect]
     Active Substance: VENLAFAXINE HYDROCHLORIDE
     Indication: SUICIDE ATTEMPT
     Route: 048
     Dates: start: 20180212, end: 20180212

REACTIONS (1)
  - Altered state of consciousness [Recovered/Resolved]

NARRATIVE: CASE EVENT DATE: 20180212
